FAERS Safety Report 21034441 (Version 1)
Quarter: 2022Q3

REPORT INFORMATION
  Report Type: Spontaneous
  Country: US (occurrence: None)
  Receive Date: 20220701
  Receipt Date: 20220701
  Transmission Date: 20221027
  Serious: Yes (Disabling, Other)
  Sender: FDA-Public Use
  Company Number: None

PATIENT
  Age: 64 Year
  Sex: Female
  Weight: 79.83 kg

DRUGS (16)
  1. PROLIA [Suspect]
     Active Substance: DENOSUMAB
     Indication: Osteoporosis
     Dosage: OTHER FREQUENCY : 2 TIMES A YEAR;?
     Dates: start: 20211216
  2. PATANASE [Concomitant]
     Active Substance: OLOPATADINE HYDROCHLORIDE
  3. PADADAY [Concomitant]
  4. AZELASTINE HYDROCHLORIDE [Concomitant]
     Active Substance: AZELASTINE HYDROCHLORIDE
  5. EPI PEN 2-PAK [Concomitant]
  6. XYZAL [Concomitant]
     Active Substance: LEVOCETIRIZINE DIHYDROCHLORIDE
  7. FLONASE [Concomitant]
     Active Substance: FLUTICASONE PROPIONATE
  8. ALIVANE SUPPLEMENT CHOLACOL [Concomitant]
  9. GANNABSMEGA [Concomitant]
  10. ZINC [Concomitant]
     Active Substance: ZINC
  11. VITAMIN D3 [Concomitant]
     Active Substance: CHOLECALCIFEROL
  12. VITAMIN C [Concomitant]
     Active Substance: ASCORBIC ACID
  13. B-SUPREME [Concomitant]
  14. MINERAL G50 [Concomitant]
  15. VITRA MULTIVITAMIN [Concomitant]
  16. PHOSPHATIPYLCHOLINE + CALCIUM CITRATE [Concomitant]

REACTIONS (9)
  - Dizziness [None]
  - Pain in extremity [None]
  - Muscle spasms [None]
  - Paraesthesia oral [None]
  - Paraesthesia oral [None]
  - Hypersensitivity [None]
  - Pain in extremity [None]
  - Pain in jaw [None]
  - Infection [None]

NARRATIVE: CASE EVENT DATE: 20211219
